FAERS Safety Report 10032849 (Version 1)
Quarter: 2014Q1

REPORT INFORMATION
  Report Type: Spontaneous
  Country: CA (occurrence: CA)
  Receive Date: 20140324
  Receipt Date: 20140324
  Transmission Date: 20141002
  Serious: Yes (Other)
  Sender: FDA-Public Use
  Company Number: CA-BRISTOL-MYERS SQUIBB COMPANY-20543922

PATIENT
  Age: 61 Year
  Sex: Male

DRUGS (3)
  1. ORENCIA FOR INJ [Suspect]
     Indication: RHEUMATOID ARTHRITIS
     Route: 042
     Dates: start: 201104
  2. LIPITOR [Concomitant]
  3. ASA [Concomitant]

REACTIONS (2)
  - Tooth disorder [Unknown]
  - Device related infection [Unknown]
